FAERS Safety Report 23504047 (Version 3)
Quarter: 2024Q2

REPORT INFORMATION
  Report Type: Spontaneous
  Country: GB (occurrence: GB)
  Receive Date: 20240209
  Receipt Date: 20240402
  Transmission Date: 20240716
  Serious: Yes (Death, Life-Threatening, Hospitalization, Other)
  Sender: FDA-Public Use
  Company Number: GB-CELLTRION INC.-2024GB002787

PATIENT

DRUGS (1)
  1. INFLIXIMAB [Suspect]
     Active Substance: INFLIXIMAB
     Indication: Colitis ulcerative
     Dosage: 5MG/KG INFUSION LAST TAKEN IN DECEMBER 2023/ ADDITIONAL INFO: ROUTE:
     Dates: end: 202312

REACTIONS (9)
  - Interstitial lung disease [Fatal]
  - Diarrhoea [Fatal]
  - Pyrexia [Fatal]
  - Chills [Fatal]
  - Dyspnoea [Fatal]
  - Respiratory failure [Fatal]
  - Multiple organ dysfunction syndrome [Fatal]
  - Blood test abnormal [Fatal]
  - Poor peripheral circulation [Fatal]

NARRATIVE: CASE EVENT DATE: 20240122
